FAERS Safety Report 9448206 (Version 6)
Quarter: 2014Q1

REPORT INFORMATION
  Report Type: Report from Study
  Country: BR (occurrence: BR)
  Receive Date: 20130808
  Receipt Date: 20140207
  Transmission Date: 20141002
  Serious: Yes (Other)
  Sender: FDA-Public Use
  Company Number: PHHY2013BR084221

PATIENT
  Age: 68 Year
  Sex: Female
  Weight: 74 kg

DRUGS (14)
  1. SANDOSTATIN LAR [Suspect]
     Indication: ACROMEGALY
     Dosage: 10 MG, QMO
     Route: 030
     Dates: start: 2002
  2. SANDOSTATIN LAR [Suspect]
     Dosage: 20 MG, QMO
     Route: 030
  3. SANDOSTATIN LAR [Suspect]
     Dosage: 30 MG, EVERY 45 DAYS
     Route: 030
  4. SANDOSTATIN LAR [Suspect]
     Dosage: 30 MG, EVERY 60 DAYS
     Dates: start: 200311
  5. SANDOSTATIN LAR [Suspect]
     Dosage: UNK UKN, EVERY 30 DAYS
     Dates: end: 2013
  6. SANDOSTATIN LAR [Suspect]
     Dosage: UNK UKN, EVERY 45 DAYS
     Dates: start: 2013
  7. CALCIUM [Suspect]
     Indication: OSTEOPOROSIS
     Dosage: UNK UKN, BID
  8. DOSTINEX [Suspect]
     Dosage: UNK UKN, UNK
  9. DOSTINEX [Suspect]
     Dosage: UNK UKN, UNK
     Dates: start: 20140113
  10. LOSARTAN [Concomitant]
     Indication: HYPERTENSION
     Dosage: 1 DF, QD
     Dates: start: 201301
  11. LOSARTAN [Concomitant]
     Dosage: UNK UKN, BID
  12. HYDROCHLOROTHIAZIDE [Concomitant]
     Indication: HYPERTENSION
     Dosage: 1 DF, QD
     Route: 048
     Dates: start: 201301
  13. ALENDRONATE [Concomitant]
     Indication: OSTEOPOROSIS
     Dosage: UNK UKN, QW
  14. AAS [Concomitant]
     Dosage: UNK UKN, QD

REACTIONS (19)
  - Osteoporosis [Recovered/Resolved]
  - Varicose vein [Recovered/Resolved]
  - Blood cholesterol increased [Recovered/Resolved]
  - Heart rate increased [Recovered/Resolved]
  - Weight decreased [Unknown]
  - Fatigue [Unknown]
  - Renal disorder [Unknown]
  - Hormone level abnormal [Unknown]
  - Emotional disorder [Recovered/Resolved]
  - Tooth disorder [Recovered/Resolved]
  - Oral pain [Not Recovered/Not Resolved]
  - Memory impairment [Unknown]
  - Anxiety [Unknown]
  - Insomnia [Unknown]
  - Hypotension [Recovering/Resolving]
  - Pain in extremity [Unknown]
  - Hypertension [Unknown]
  - Blood growth hormone abnormal [Unknown]
  - Drug ineffective [Unknown]
